FAERS Safety Report 8107970-9 (Version None)
Quarter: 2012Q1

REPORT INFORMATION
  Report Type: 
  Country: None (occurrence: None)
  Receive Date: 20120202
  Receipt Date: 20120118
  Transmission Date: 20120608
  Serious: Yes (Death, Hospitalization, Other)
  Sender: FDA-Public Use
  Company Number: JP-ROCHE-798773

PATIENT
  Sex: Male

DRUGS (60)
  1. ACTEMRA [Suspect]
     Route: 041
     Dates: start: 20110201, end: 20110413
  2. PREDNISOLONE AND PREDNISOLONE ACETATE AND PREDNISOLONE SODIUM SUCCINAT [Suspect]
     Route: 042
     Dates: start: 20110212, end: 20110212
  3. FUROSEMIDE [Suspect]
     Route: 042
     Dates: start: 20110218, end: 20110314
  4. ADALAT [Concomitant]
     Route: 048
     Dates: start: 20101130, end: 20101214
  5. AMARYL [Concomitant]
     Route: 048
     Dates: start: 20110311, end: 20110313
  6. HUMULIN R [Concomitant]
     Route: 042
     Dates: start: 20110117, end: 20110117
  7. HUMULIN R [Concomitant]
     Route: 042
     Dates: start: 20110118, end: 20110118
  8. HUMULIN R [Concomitant]
     Route: 042
     Dates: start: 20110203, end: 20110205
  9. PREDNISOLONE AND PREDNISOLONE ACETATE AND PREDNISOLONE SODIUM SUCCINAT [Suspect]
     Route: 048
     Dates: start: 20110213, end: 20110215
  10. FUROSEMIDE [Suspect]
     Route: 048
     Dates: start: 20110314, end: 20110422
  11. KALIMATE [Concomitant]
     Dosage: DOSE FORM: POWDERED MEDICINE
     Route: 048
     Dates: start: 20101130, end: 20101216
  12. ADALAT [Concomitant]
     Route: 048
     Dates: start: 20101228, end: 20110422
  13. DIOVAN [Concomitant]
     Route: 048
     Dates: start: 20101209, end: 20101215
  14. LECICARBON [Concomitant]
     Dosage: NOTE: AT THE OBSTIPATION
     Route: 054
     Dates: start: 20101212, end: 20101222
  15. KIDMIN [Concomitant]
     Dosage: DRUG: KIDMIN(AMINO ACID PREPARATIONS FOR RENAL INSUFFICIENCY)
     Route: 042
     Dates: start: 20101128, end: 20101203
  16. VITAJECT [Concomitant]
     Dosage: ROUTE: INTRAVENOUS (NOT OTHERWISE SPECIFIED)
     Route: 042
     Dates: start: 20110114, end: 20110212
  17. PREDNISOLONE AND PREDNISOLONE ACETATE AND PREDNISOLONE SODIUM SUCCINAT [Suspect]
     Route: 042
     Dates: start: 20101220, end: 20110211
  18. PREDNISOLONE AND PREDNISOLONE ACETATE AND PREDNISOLONE SODIUM SUCCINAT [Suspect]
     Route: 042
     Dates: start: 20110216, end: 20110216
  19. SOLU-CORTEF [Concomitant]
     Dosage: ROUTE: INTRAVENOUS (NOT OTHERWISE SPECIFIED)
     Route: 042
     Dates: start: 20101204, end: 20101218
  20. ADALAT [Concomitant]
     Route: 048
     Dates: start: 20101211, end: 20101214
  21. ARGAMATE [Concomitant]
     Dosage: DOSE FORM: JELLY
     Route: 048
     Dates: start: 20101222, end: 20110303
  22. PURSENNID [Concomitant]
     Route: 048
     Dates: start: 20110314, end: 20110422
  23. HICALIQ [Concomitant]
     Dosage: DRUG: HICALIQ RF(INTRAVENOUS HYPERALIMENTATIVE BASIC SOLUTION)
     Route: 042
     Dates: start: 20101128, end: 20101203
  24. HUMULIN R [Concomitant]
     Route: 042
     Dates: start: 20110116, end: 20110116
  25. HUMULIN R [Concomitant]
     Route: 042
     Dates: start: 20110120, end: 20110120
  26. HUMULIN R [Concomitant]
     Route: 042
     Dates: start: 20110423, end: 20110424
  27. PREDNISOLONE AND PREDNISOLONE ACETATE AND PREDNISOLONE SODIUM SUCCINAT [Suspect]
     Route: 042
     Dates: start: 20110424, end: 20110424
  28. FUROSEMIDE [Suspect]
     Indication: CASTLEMAN'S DISEASE
     Dosage: ROUTE: INTRAVENOUS (NOT OTHERWISE SPECIFIED)
     Route: 042
     Dates: start: 20101126, end: 20101201
  29. SOLU-CORTEF [Concomitant]
     Route: 042
     Dates: start: 20110101, end: 20110101
  30. AMARYL [Concomitant]
     Route: 048
     Dates: start: 20110314, end: 20110321
  31. HICALIQ [Concomitant]
     Dosage: ROUTE: INTRAVENOUS (NOT OTHERWISE SPECIFIED)
     Route: 042
     Dates: start: 20110114, end: 20110212
  32. HUMULIN R [Concomitant]
     Dosage: DRUG: HUMULIN R(INSULIN HUMAN(GENETICAL RECOMBINATION))
     Route: 042
     Dates: start: 20101202, end: 20101203
  33. ACTEMRA [Suspect]
     Indication: CASTLEMAN'S DISEASE
     Route: 041
     Dates: start: 20101204, end: 20101218
  34. ACTEMRA [Suspect]
     Route: 041
     Dates: start: 20110101, end: 20110101
  35. PREDNISOLONE AND PREDNISOLONE ACETATE AND PREDNISOLONE SODIUM SUCCINAT [Suspect]
     Route: 048
     Dates: start: 20110212, end: 20110212
  36. SOLU-CORTEF [Concomitant]
     Route: 042
     Dates: start: 20110201, end: 20110413
  37. ALLOPURINOL [Concomitant]
     Route: 048
     Dates: start: 20101101, end: 20110120
  38. ACYCLOVIR [Concomitant]
     Route: 048
     Dates: start: 20110311, end: 20110422
  39. HUMULIN R [Concomitant]
     Route: 042
     Dates: start: 20110119, end: 20110119
  40. HUMULIN R [Concomitant]
     Route: 042
     Dates: start: 20110121, end: 20110131
  41. PREDNISOLONE AND PREDNISOLONE ACETATE AND PREDNISOLONE SODIUM SUCCINAT [Suspect]
     Route: 042
     Dates: start: 20110217, end: 20110311
  42. METOCLOPRAMIDE [Concomitant]
     Route: 048
     Dates: start: 20101129, end: 20101216
  43. ALLOPURINOL [Concomitant]
     Route: 048
     Dates: start: 20110121, end: 20110422
  44. DIOVAN [Concomitant]
     Route: 048
     Dates: start: 20101211, end: 20110422
  45. MAGMITT [Concomitant]
     Route: 048
     Dates: start: 20110310, end: 20110422
  46. HUMULIN R [Concomitant]
     Route: 042
     Dates: start: 20110201, end: 20110202
  47. PREDNISOLONE AND PREDNISOLONE ACETATE AND PREDNISOLONE SODIUM SUCCINAT [Suspect]
     Indication: CASTLEMAN'S DISEASE
     Dosage: ROUTE: INTRAVENOUS (NOT OTHERWISE SPECIFIED)
     Route: 042
     Dates: start: 20101129, end: 20101203
  48. FLUCONAZOLE [Concomitant]
     Route: 048
     Dates: start: 20101225, end: 20110317
  49. ACETAMINOPHEN [Concomitant]
     Dosage: DRUG: CALONAL(ACETAMINOPHEN)
     Route: 048
     Dates: start: 20101215, end: 20101224
  50. MORPHINE [Concomitant]
     Dosage: DOSE FORM: PERORAL LIQUID PREPARATION
     Route: 048
     Dates: start: 20110128, end: 20110422
  51. KIDMIN [Concomitant]
     Route: 042
     Dates: start: 20110114, end: 20110212
  52. HUMULIN R [Concomitant]
     Dosage: ROUTE: INTRAVENOUS (NOT OTHERWISE SPECIFIED)
     Route: 042
     Dates: start: 20110115, end: 20110115
  53. HUMULIN R [Concomitant]
     Route: 042
     Dates: start: 20110209, end: 20110212
  54. PREDNISOLONE ACETATE AND PREDNISOLONE AND PREDNISOLONE SODIUM SUCCINAT [Suspect]
     Route: 042
     Dates: start: 20101216, end: 20101216
  55. PREDNISOLONE AND PREDNISOLONE ACETATE AND PREDNISOLONE SODIUM SUCCINAT [Suspect]
     Route: 042
     Dates: start: 20101217, end: 20101219
  56. PREDNISOLONE AND PREDNISOLONE ACETATE AND PREDNISOLONE SODIUM SUCCINAT [Suspect]
     Route: 048
     Dates: start: 20110216, end: 20110216
  57. LANSOPRAZOLE [Concomitant]
     Route: 048
     Dates: start: 20101129, end: 20110422
  58. AMARYL [Concomitant]
     Route: 048
     Dates: start: 20110322, end: 20110422
  59. VITAJECT [Concomitant]
     Dosage: DRUG: VITAJECT(MULTIPLE VITAMIN FOR TOTAL PARENTERAL NUTRITION)
     Route: 042
     Dates: start: 20101202, end: 20101203
  60. HUMULIN R [Concomitant]
     Route: 042
     Dates: start: 20110206, end: 20110208

REACTIONS (7)
  - MENINGITIS [None]
  - DECUBITUS ULCER [None]
  - DIABETES MELLITUS [None]
  - BLOOD PRESSURE INCREASED [None]
  - PALPITATIONS [None]
  - SEPTIC SHOCK [None]
  - HYPOKALAEMIA [None]
